FAERS Safety Report 8816807 (Version 2)
Quarter: 2012Q4

REPORT INFORMATION
  Report Type: Spontaneous
  Country: GB (occurrence: None)
  Receive Date: 20121001
  Receipt Date: 20121031
  Transmission Date: 20130627
  Serious: Yes (Disabling, Other)
  Sender: FDA-Public Use
  Company Number: GB-1194234

PATIENT
  Age: 75 Year
  Sex: Male

DRUGS (4)
  1. MAXITROL [Suspect]
     Route: 047
  2. MAXITROL [Suspect]
     Route: 047
  3. AZARGA [Suspect]
     Route: 047
  4. CILOXAN [Suspect]
     Route: 047

REACTIONS (4)
  - Visual acuity reduced [None]
  - Condition aggravated [None]
  - Amnesia [None]
  - Impaired driving ability [None]
